FAERS Safety Report 7511361-9 (Version None)
Quarter: 2011Q2

REPORT INFORMATION
  Report Type: 
  Country: None (occurrence: None)
  Receive Date: 20110531
  Receipt Date: 20110318
  Transmission Date: 20111010
  Serious: Yes (Hospitalization, Other)
  Sender: FDA-Public Use
  Company Number: US-BAYER-201028007NA

PATIENT
  Age: 21 Year
  Sex: Female
  Weight: 56.689 kg

DRUGS (8)
  1. ORAL CONTRACEPTIVE NOS [Concomitant]
  2. DOCUSATE SODIUM [Concomitant]
     Dosage: 100 MG, BID
  3. ACETAMINOPHEN AND HYDROCODONE BITARTRATE [Concomitant]
     Dosage: 5MG/325MG FOUR TIMES DAILY AS NEEDED
  4. ACETAMINOPHEN AND HYDROCODONE BITARTRATE [Concomitant]
     Dosage: 5MG/ 325MG FOUR TIMES DAILY AS NEEDED
  5. YAZ [Suspect]
     Indication: PRODUCT USED FOR UNKNOWN INDICATION
     Dosage: UNK
     Route: 048
     Dates: start: 20070101, end: 20080101
  6. MULTI-VITAMINS [Concomitant]
     Dosage: 100 MG, QD
     Route: 048
  7. NSAID'S [Concomitant]
  8. FISH OIL [Concomitant]
     Route: 048

REACTIONS (7)
  - GALLBLADDER DISORDER [None]
  - CHOLECYSTITIS CHRONIC [None]
  - MALAISE [None]
  - LIVER DISORDER [None]
  - NAUSEA [None]
  - PAIN [None]
  - HEPATIC NEOPLASM MALIGNANT [None]
